FAERS Safety Report 23695098 (Version 1)
Quarter: 2024Q2

REPORT INFORMATION
  Report Type: Spontaneous
  Country: GB (occurrence: GB)
  Receive Date: 20240402
  Receipt Date: 20240402
  Transmission Date: 20240716
  Serious: Yes (Other)
  Sender: FDA-Public Use
  Company Number: None

PATIENT
  Age: 77 Year
  Sex: Male
  Weight: 88 kg

DRUGS (15)
  1. AMLODIPINE [Suspect]
     Active Substance: AMLODIPINE BESYLATE
     Indication: Product used for unknown indication
     Dates: start: 20240201
  2. ASPIRIN [Concomitant]
     Active Substance: ASPIRIN
     Dates: start: 20230707
  3. ATORVASTATIN [Concomitant]
     Active Substance: ATORVASTATIN
     Dosage: AT NIGHT
     Dates: start: 20230707
  4. CARBOCYSTEINE [Concomitant]
     Active Substance: CARBOCYSTEINE
     Indication: Bronchiectasis
     Dates: start: 20240315
  5. CEPHALEXIN [Concomitant]
     Active Substance: CEPHALEXIN
     Dates: start: 20240112, end: 20240119
  6. FELODIPINE [Concomitant]
     Active Substance: FELODIPINE
     Dates: start: 20240315
  7. FERROUS FUMARATE [Concomitant]
     Active Substance: FERROUS FUMARATE
     Dosage: AS PER DISCHARGE
     Dates: start: 20240315
  8. FOLIC ACID [Concomitant]
     Active Substance: FOLIC ACID
     Dates: start: 20240214, end: 20240313
  9. LACTULOSE [Concomitant]
     Active Substance: LACTULOSE
     Indication: Constipation
     Dosage: TWICE DAILY WHEN NEEDED
     Dates: start: 20240315
  10. OMEPRAZOLE [Concomitant]
     Active Substance: OMEPRAZOLE
     Dates: start: 20230707
  11. RANOLAZINE [Concomitant]
     Active Substance: RANOLAZINE
     Dosage: TAKE ONE TWICE DAILY
     Dates: start: 20231124
  12. GLYCOPYRROLATE [Concomitant]
     Active Substance: GLYCOPYRROLATE
     Route: 055
     Dates: start: 20240201, end: 20240302
  13. SERTRALINE [Concomitant]
     Active Substance: SERTRALINE HYDROCHLORIDE
     Dates: start: 20230707
  14. TAMSULOSIN HYDROCHLORIDE [Concomitant]
     Active Substance: TAMSULOSIN HYDROCHLORIDE
     Dates: start: 20230707
  15. TOLTERODINE TARTRATE [Concomitant]
     Active Substance: TOLTERODINE TARTRATE
     Indication: Bladder disorder
     Dates: start: 20240122, end: 20240219

REACTIONS (1)
  - Hallucination [Recovered/Resolved]
